FAERS Safety Report 20437288 (Version 1)
Quarter: 2022Q1

REPORT INFORMATION
  Report Type: Spontaneous
  Country: US (occurrence: None)
  Receive Date: 20220204
  Receipt Date: 20220204
  Transmission Date: 20220423
  Serious: Yes (Death)
  Sender: FDA-Public Use
  Company Number: None

PATIENT
  Age: 64 Year
  Sex: Female
  Weight: 90.3 kg

DRUGS (5)
  1. ENOXAPARIN [Suspect]
     Active Substance: ENOXAPARIN
     Indication: COVID-19
     Dosage: FREQUENCY : TWICE A DAY;?
     Route: 058
     Dates: start: 20220107, end: 20220111
  2. DEXAMETHASONE [Concomitant]
     Active Substance: DEXAMETHASONE
  3. REMDESIVIR [Concomitant]
     Active Substance: REMDESIVIR
  4. DEXMEDETOMIDINE [Concomitant]
     Active Substance: DEXMEDETOMIDINE
  5. CEFTRIAXONE [Concomitant]
     Active Substance: CEFTRIAXONE

REACTIONS (2)
  - COVID-19 pneumonia [None]
  - Retroperitoneal haematoma [None]

NARRATIVE: CASE EVENT DATE: 20220111
